FAERS Safety Report 9956769 (Version 1)
Quarter: 2014Q1

REPORT INFORMATION
  Report Type: Report from Study
  Country: US (occurrence: US)
  Receive Date: 20140304
  Receipt Date: 20140304
  Transmission Date: 20141002
  Serious: No
  Sender: FDA-Public Use
  Company Number: US-ABBVIE-13P-163-1098754-00

PATIENT
  Age: 44 Year
  Sex: Male
  Weight: 77.18 kg

DRUGS (8)
  1. HUMIRA [Suspect]
     Indication: PSORIASIS
  2. HUMIRA [Suspect]
     Dosage: ONE WEEK AFTER INITIAL DOSE
     Dates: start: 2013
  3. CYMBALTA [Concomitant]
     Indication: ANXIETY
  4. KLONOPIN [Concomitant]
     Indication: ANXIETY
  5. PRILOSEC OTC [Concomitant]
     Indication: DYSPEPSIA
  6. VERAMYST [Concomitant]
     Indication: SEASONAL ALLERGY
  7. METHOTREXATE [Concomitant]
     Indication: PSORIASIS
  8. FOLIC ACID [Concomitant]
     Indication: PRODUCT USED FOR UNKNOWN INDICATION

REACTIONS (1)
  - Sinusitis [Not Recovered/Not Resolved]
